FAERS Safety Report 6992915-5 (Version None)
Quarter: 2010Q3

REPORT INFORMATION
  Report Type: 
  Country: None (occurrence: None)
  Receive Date: 20100917
  Receipt Date: 20100907
  Transmission Date: 20110219
  Serious: Yes (Hospitalization, Other)
  Sender: FDA-Public Use
  Company Number: US-PFIZER INC-2010094875

PATIENT
  Sex: Female

DRUGS (5)
  1. LYRICA [Suspect]
     Indication: LUMBAR RADICULOPATHY
     Dosage: 100 MG, 3X/DAY
     Route: 048
     Dates: start: 20080101, end: 20100101
  2. METHADONE HCL [Interacting]
     Dosage: 40 MG IN THE MORNING, 40 MG AT NOON, 40 MG IN THE EVENING AND 50 MG AT BEDTIME
     Route: 048
     Dates: start: 20050101, end: 20100101
  3. DILAUDID [Concomitant]
  4. SOMA [Concomitant]
  5. AMBIEN [Concomitant]

REACTIONS (2)
  - DRUG INTERACTION [None]
  - GRAND MAL CONVULSION [None]
